FAERS Safety Report 5361570-2 (Version None)
Quarter: 2007Q2

REPORT INFORMATION
  Report Type: 
  Country: None (occurrence: None)
  Receive Date: 20070619
  Receipt Date: 20070608
  Transmission Date: 20071010
  Serious: Yes (Hospitalization)
  Sender: FDA-Public Use
  Company Number: US-JNJFOC-20070602249

PATIENT
  Sex: Female
  Weight: 81.65 kg

DRUGS (14)
  1. FENTANYL TRANSDERMAL SYSTEM [Suspect]
     Indication: PAIN
     Route: 062
  2. DIAZEPAM [Concomitant]
     Indication: ANXIETY
     Route: 048
  3. SINGULAIR [Concomitant]
     Indication: MULTIPLE ALLERGIES
     Route: 048
  4. ATROVENT [Concomitant]
     Route: 055
  5. DITROPAN XL [Concomitant]
     Indication: BLADDER DISORDER
     Route: 048
  6. AMBIEN [Concomitant]
     Indication: SLEEP DISORDER
     Route: 048
  7. NEXIUM [Concomitant]
     Indication: DYSPEPSIA
     Route: 048
  8. LEVOXYL [Concomitant]
     Indication: THYROID DISORDER
     Route: 048
  9. ARAVA [Concomitant]
     Indication: RHEUMATOID ARTHRITIS
     Route: 048
  10. COUMADIN [Concomitant]
     Indication: ANTICOAGULANT THERAPY
     Route: 048
  11. ZOLOFT [Concomitant]
     Indication: DEPRESSION
     Route: 048
  12. AMITRIPTYLINE HCL [Concomitant]
     Indication: ANXIETY
     Route: 048
  13. NASONEX [Concomitant]
     Indication: MULTIPLE ALLERGIES
     Route: 045
  14. ALBUTEROL [Concomitant]
     Route: 048

REACTIONS (4)
  - CONFUSIONAL STATE [None]
  - DIARRHOEA [None]
  - DYSPHAGIA [None]
  - SWELLING [None]
